FAERS Safety Report 23868594 (Version 1)
Quarter: 2024Q2

REPORT INFORMATION
  Report Type: Spontaneous
  Country: JP (occurrence: JP)
  Receive Date: 20240517
  Receipt Date: 20240517
  Transmission Date: 20240716
  Serious: Yes (Other)
  Sender: FDA-Public Use
  Company Number: JP-PFIZER INC-202400107052

PATIENT
  Sex: Female

DRUGS (1)
  1. HALCION [Suspect]
     Active Substance: TRIAZOLAM
     Indication: Poor quality sleep
     Dosage: UNK
     Route: 048
     Dates: start: 202311

REACTIONS (2)
  - Glaucoma [Unknown]
  - Hypersensitivity [Unknown]
